FAERS Safety Report 12310872 (Version 1)
Quarter: 2016Q2

REPORT INFORMATION
  Report Type: Spontaneous
  Country: US (occurrence: US)
  Receive Date: 20160427
  Receipt Date: 20160427
  Transmission Date: 20160815
  Serious: Yes (Other)
  Sender: FDA-Public Use
  Company Number: US-LPDUSPRD-20160333

PATIENT
  Age: 26 Year
  Sex: Female

DRUGS (3)
  1. VITAMIN B12 [Concomitant]
     Active Substance: CYANOCOBALAMIN
     Dosage: DOSE NOT PROVIDED
     Route: 030
  2. PRENATAL VITAMINS [Concomitant]
     Active Substance: VITAMINS
     Dosage: DOSE NOT PROVIDED
     Route: 065
  3. VENOFER [Suspect]
     Active Substance: IRON SUCROSE
     Dosage: 300 MG OVER 1.5 HOURS
     Route: 042

REACTIONS (4)
  - Rash macular [Unknown]
  - Exposure during pregnancy [Unknown]
  - Abdominal pain upper [Unknown]
  - Flank pain [Unknown]

NARRATIVE: CASE EVENT DATE: 20160412
